FAERS Safety Report 8274659-5 (Version None)
Quarter: 2012Q2

REPORT INFORMATION
  Report Type: 
  Country: None (occurrence: None)
  Receive Date: 20120411
  Receipt Date: 20120405
  Transmission Date: 20120825
  Serious: Yes (Hospitalization)
  Sender: FDA-Public Use
  Company Number: JP-GLAXOSMITHKLINE-B0790898A

PATIENT
  Age: 51 Year
  Sex: Female

DRUGS (4)
  1. METHYCOBAL [Concomitant]
     Indication: HERPES ZOSTER
     Dosage: 1500MCG PER DAY
     Route: 048
     Dates: start: 20120312, end: 20120316
  2. VALTREX [Suspect]
     Indication: HERPES ZOSTER
     Dosage: 3000MG PER DAY
     Route: 048
     Dates: start: 20120312, end: 20120316
  3. MUCOSTA [Concomitant]
     Indication: GASTRITIS
     Dosage: 300MG PER DAY
     Route: 048
     Dates: start: 20120312, end: 20120316
  4. LORFENAMIN [Suspect]
     Indication: HERPES ZOSTER
     Dosage: 180MG PER DAY
     Route: 048
     Dates: start: 20120312, end: 20120316

REACTIONS (3)
  - OEDEMA [None]
  - WEIGHT INCREASED [None]
  - TUBULOINTERSTITIAL NEPHRITIS [None]
